FAERS Safety Report 20910012 (Version 4)
Quarter: 2022Q4

REPORT INFORMATION
  Report Type: Spontaneous
  Country: US (occurrence: US)
  Receive Date: 20220603
  Receipt Date: 20221031
  Transmission Date: 20230113
  Serious: No
  Sender: FDA-Public Use
  Company Number: US-BRISTOL-MYERS SQUIBB COMPANY-2022-051757

PATIENT
  Age: 75 Year
  Sex: Female

DRUGS (2)
  1. REVLIMID [Suspect]
     Active Substance: LENALIDOMIDE
     Indication: Plasma cell myeloma
     Dosage: FREQ- TAKE 1 CAPSULE BY MOUTH EVERY DAY FOR 21 DAYS,THEN OFF 7 DAYS.
     Route: 048
  2. REVLIMID [Suspect]
     Active Substance: LENALIDOMIDE
     Indication: Plasma cell myeloma
     Dosage: FREQ : FOR 21 DAYS ON, THEN 7 DAYS OFF
     Route: 048
     Dates: start: 20210512

REACTIONS (3)
  - Nasopharyngitis [Not Recovered/Not Resolved]
  - Hypoaesthesia [Unknown]
  - Breast cyst [Unknown]
